FAERS Safety Report 8967810 (Version 1)
Quarter: 2012Q4

REPORT INFORMATION
  Report Type: Spontaneous
  Country: US (occurrence: None)
  Receive Date: 20121213
  Receipt Date: 20121213
  Transmission Date: 20130627
  Serious: Yes (Other)
  Sender: FDA-Public Use
  Company Number: None

PATIENT
  Age: 65 Year
  Sex: Male
  Weight: 86.18 kg

DRUGS (1)
  1. AVASTIN [Suspect]
     Indication: MACULAR DEGENERATION
     Dosage: 1 injection every 406 weeks, intraocular
     Route: 031
     Dates: start: 20121017, end: 20121205

REACTIONS (5)
  - Injection site pain [None]
  - Burning sensation [None]
  - Chills [None]
  - Hyperhidrosis [None]
  - Restlessness [None]
